FAERS Safety Report 10021097 (Version 1)
Quarter: 2014Q1

REPORT INFORMATION
  Report Type: Spontaneous
  Country: US (occurrence: None)
  Receive Date: 20140318
  Receipt Date: 20140318
  Transmission Date: 20141002
  Serious: Yes (Other)
  Sender: FDA-Public Use
  Company Number: None

PATIENT
  Age: 56 Year
  Sex: Female

DRUGS (1)
  1. ENBREL SURECLICK 50 MG [Suspect]
     Dosage: 50 MG QW SQ
     Route: 058
     Dates: start: 20140120, end: 20140301

REACTIONS (3)
  - Nasopharyngitis [None]
  - Pruritus [None]
  - Pruritus [None]
